FAERS Safety Report 16911215 (Version 2)
Quarter: 2019Q4

REPORT INFORMATION
  Report Type: Spontaneous
  Country: US (occurrence: US)
  Receive Date: 20191012
  Receipt Date: 20191016
  Transmission Date: 20200122
  Serious: Yes (Other)
  Sender: FDA-Public Use
  Company Number: US-TEVA-2019-US-1119887

PATIENT
  Sex: Female

DRUGS (2)
  1. CLONAZEPAM TEVA [Suspect]
     Active Substance: CLONAZEPAM
     Indication: NEUROMYOPATHY
  2. CLONAZEPAM TEVA [Suspect]
     Active Substance: CLONAZEPAM
     Indication: MUSCLE DISORDER
     Route: 065

REACTIONS (6)
  - Toxicity to various agents [Unknown]
  - Malaise [Unknown]
  - Muscle atrophy [Unknown]
  - Drug ineffective [Unknown]
  - Cerebral disorder [Unknown]
  - Mental disorder [Unknown]
